FAERS Safety Report 7442856-4 (Version None)
Quarter: 2011Q2

REPORT INFORMATION
  Report Type: 
  Country: None (occurrence: None)
  Receive Date: 20110428
  Receipt Date: 20110418
  Transmission Date: 20111010
  Serious: Yes (Hospitalization)
  Sender: FDA-Public Use
  Company Number: FR-JNJFOC-20110408912

PATIENT
  Sex: Male

DRUGS (3)
  1. PREZISTA [Concomitant]
     Indication: HIV INFECTION
  2. NORVIR [Concomitant]
     Indication: HIV INFECTION
  3. INTELENCE [Suspect]
     Indication: HIV INFECTION
     Route: 048

REACTIONS (2)
  - ABDOMINAL PAIN [None]
  - HEADACHE [None]
